FAERS Safety Report 13430613 (Version 2)
Quarter: 2017Q2

REPORT INFORMATION
  Report Type: Spontaneous
  Country: CA (occurrence: CA)
  Receive Date: 20170412
  Receipt Date: 20170516
  Transmission Date: 20170830
  Serious: Yes (Other)
  Sender: FDA-Public Use
  Company Number: CA-SUN PHARMACEUTICAL INDUSTRIES LTD-2017US-138097

PATIENT
  Sex: Male

DRUGS (4)
  1. RAN-ATORVASTATIN [Suspect]
     Active Substance: ATORVASTATIN
     Indication: BLOOD CHOLESTEROL INCREASED
     Dosage: UNK
     Route: 065
  2. RAN-ATORVASTATIN [Suspect]
     Active Substance: ATORVASTATIN
     Indication: BLOOD CHOLESTEROL INCREASED
     Dosage: UNK
     Route: 065
     Dates: start: 2013
  3. RAN-ATORVASTATIN [Suspect]
     Active Substance: ATORVASTATIN
     Indication: BLOOD CHOLESTEROL INCREASED
     Dosage: 40 MG, QD (AT NIGHT)
     Route: 065
     Dates: start: 2014
  4. RAN-EZETIMIBE [Concomitant]
     Indication: PRODUCT USED FOR UNKNOWN INDICATION
     Dosage: UNK
     Dates: start: 201603, end: 20170420

REACTIONS (11)
  - Blood glucose increased [Not Recovered/Not Resolved]
  - Flatulence [Unknown]
  - Insomnia [Unknown]
  - Diarrhoea [Unknown]
  - Blood pressure increased [Recovered/Resolved]
  - Anaemia [Unknown]
  - Product substitution issue [Unknown]
  - Myalgia [Unknown]
  - Drug ineffective [Unknown]
  - Panic attack [Unknown]
  - Arthralgia [Unknown]
